FAERS Safety Report 21668916 (Version 1)
Quarter: 2022Q4

REPORT INFORMATION
  Report Type: Spontaneous
  Country: JP (occurrence: JP)
  Receive Date: 20221201
  Receipt Date: 20221201
  Transmission Date: 20230113
  Serious: Yes (Hospitalization)
  Sender: FDA-Public Use
  Company Number: JP-DSJP-DSJ-2022-143282

PATIENT
  Age: 38 Year
  Sex: Female

DRUGS (1)
  1. ENHERTU [Suspect]
     Active Substance: FAM-TRASTUZUMAB DERUXTECAN-NXKI
     Indication: Breast cancer recurrent
     Dosage: UNK
     Route: 065
     Dates: start: 20211214, end: 20221102

REACTIONS (2)
  - Disease progression [Not Recovered/Not Resolved]
  - Pleural effusion [Not Recovered/Not Resolved]
